FAERS Safety Report 23144765 (Version 1)
Quarter: 2023Q4

REPORT INFORMATION
  Report Type: Spontaneous
  Country: US (occurrence: US)
  Receive Date: 20231103
  Receipt Date: 20231103
  Transmission Date: 20240110
  Serious: Yes (Other)
  Sender: FDA-Public Use
  Company Number: US-PFIZER INC-202300350975

PATIENT
  Age: 53 Year
  Sex: Male
  Weight: 72.1 kg

DRUGS (6)
  1. VORICONAZOLE [Suspect]
     Active Substance: VORICONAZOLE
     Indication: Fusarium infection
     Dosage: SUPRATHERAPEUTIC TROUGHS GREATER THAN 7 THROUGHOUT GREATER THAN 75% OF TREATMENT COURSE
     Dates: start: 20230731, end: 20230818
  2. VORICONAZOLE [Suspect]
     Active Substance: VORICONAZOLE
     Indication: Purpura
  3. VORICONAZOLE [Suspect]
     Active Substance: VORICONAZOLE
     Indication: Infection
  4. AMPHOTERICIN B [Concomitant]
     Active Substance: AMPHOTERICIN B
     Indication: Fusarium infection
     Dosage: 3.5 MG/KG, 1X/DAY
     Dates: start: 20230729, end: 20230806
  5. AMPHOTERICIN B [Concomitant]
     Active Substance: AMPHOTERICIN B
     Dosage: 3.5 MG/KG, 1X/DAY
     Dates: start: 20230817
  6. AMPHOTERICIN B [Concomitant]
     Active Substance: AMPHOTERICIN B
     Dosage: 5 MG/KG, 1X/DAY (INCREASED DOSE)
     Route: 042
     Dates: start: 20230911

REACTIONS (1)
  - Hepatotoxicity [Unknown]
